FAERS Safety Report 24264215 (Version 2)
Quarter: 2024Q3

REPORT INFORMATION
  Report Type: Spontaneous
  Country: US (occurrence: US)
  Receive Date: 20240829
  Receipt Date: 20240829
  Transmission Date: 20241017
  Serious: Yes (Other)
  Sender: ASTELLAS
  Company Number: US-ASTELLAS-2024-AER-001878

PATIENT
  Age: 8 Decade
  Sex: Male

DRUGS (1)
  1. VEOZAH [Suspect]
     Active Substance: FEZOLINETANT
     Indication: Hot flush
     Dosage: UNKNOWN DOSE, ROUTE AND FREQUENCY
     Route: 050

REACTIONS (4)
  - Angina pectoris [Recovering/Resolving]
  - Blood pressure increased [Recovering/Resolving]
  - Intentional product use issue [Unknown]
  - Off label use [Unknown]
